FAERS Safety Report 24205688 (Version 6)
Quarter: 2025Q3

REPORT INFORMATION
  Report Type: Report from Study
  Country: CA (occurrence: CA)
  Receive Date: 20240813
  Receipt Date: 20250714
  Transmission Date: 20251020
  Serious: Yes (Other)
  Sender: TAKEDA
  Company Number: CA-TAKEDA-2023TUS078580

PATIENT
  Sex: Female

DRUGS (16)
  1. VEDOLIZUMAB [Suspect]
     Active Substance: VEDOLIZUMAB
     Indication: Crohn^s disease
  2. VEDOLIZUMAB [Suspect]
     Active Substance: VEDOLIZUMAB
  3. VEDOLIZUMAB [Suspect]
     Active Substance: VEDOLIZUMAB
  4. VEDOLIZUMAB [Suspect]
     Active Substance: VEDOLIZUMAB
  5. VEDOLIZUMAB [Suspect]
     Active Substance: VEDOLIZUMAB
  6. VEDOLIZUMAB [Suspect]
     Active Substance: VEDOLIZUMAB
  7. VEDOLIZUMAB [Suspect]
     Active Substance: VEDOLIZUMAB
  8. VEDOLIZUMAB [Suspect]
     Active Substance: VEDOLIZUMAB
  9. VEDOLIZUMAB [Suspect]
     Active Substance: VEDOLIZUMAB
  10. VEDOLIZUMAB [Suspect]
     Active Substance: VEDOLIZUMAB
  11. VEDOLIZUMAB [Suspect]
     Active Substance: VEDOLIZUMAB
  12. RAMIPRIL [Concomitant]
     Active Substance: RAMIPRIL
  13. HYDROCHLOROTHIAZIDE [Concomitant]
     Active Substance: HYDROCHLOROTHIAZIDE
  14. ATORVASTATIN [Concomitant]
     Active Substance: ATORVASTATIN
  15. CITALOPRAM [Concomitant]
     Active Substance: CITALOPRAM
  16. PENTASA [Concomitant]
     Active Substance: MESALAMINE

REACTIONS (2)
  - Clostridium difficile infection [Recovered/Resolved]
  - White coat hypertension [Unknown]
